FAERS Safety Report 4647863-2 (Version None)
Quarter: 2005Q2

REPORT INFORMATION
  Report Type: 
  Country: None (occurrence: None)
  Receive Date: 20050428
  Receipt Date: 20050422
  Transmission Date: 20051028
  Serious: Yes (Hospitalization, Disabling)
  Sender: FDA-Public Use
  Company Number: B0379412A

PATIENT
  Sex: Female
  Weight: 70 kg

DRUGS (5)
  1. QUILONORM RETARD [Suspect]
     Indication: DEPRESSION
     Dosage: 12.2MMOL UNKNOWN
     Route: 048
     Dates: end: 20031001
  2. TRANYLCYPROMINE SULPHATE + TRIFLUOPERAZINE HYDROCHLORIDE [Suspect]
     Indication: DEPRESSION
     Dosage: 70MG PER DAY
     Route: 048
     Dates: start: 20020101, end: 20031001
  3. DEXAMPHETAMINE [Suspect]
     Dosage: 5MG UNKNOWN
     Route: 048
     Dates: end: 20031001
  4. LEVOTHYROXINE + LIOTHYRONINE [Suspect]
     Indication: THYROID DISORDER
     Route: 048
     Dates: end: 20031001
  5. ALPRAZOLAM [Suspect]
     Indication: SLEEP DISORDER
     Dosage: 4MG PER DAY
     Route: 048
     Dates: end: 20031001

REACTIONS (4)
  - COORDINATION ABNORMAL [None]
  - DELIRIUM [None]
  - DRUG INTERACTION [None]
  - GAIT DISTURBANCE [None]
